FAERS Safety Report 22641621 (Version 1)
Quarter: 2023Q2

REPORT INFORMATION
  Report Type: Spontaneous
  Country: US (occurrence: None)
  Receive Date: 20230624
  Receipt Date: 20230624
  Transmission Date: 20230721
  Serious: No
  Sender: FDA-Public Use
  Company Number: None

PATIENT
  Age: 26 Year
  Sex: Female
  Weight: 117 kg

DRUGS (6)
  1. SODIUM FLUORIDE F-18 [Suspect]
     Active Substance: SODIUM FLUORIDE F-18
     Indication: Dental disorder prophylaxis
     Dosage: FREQUENCY : TWICE A DAY;?OTHER ROUTE : APPLIED TO TEETH VIA TOOTHBRUSH;?
     Route: 050
  2. ATOMOXETINE [Concomitant]
     Active Substance: ATOMOXETINE
  3. SERTRALINE [Concomitant]
     Active Substance: SERTRALINE HYDROCHLORIDE
  4. MELOXICAM [Concomitant]
     Active Substance: MELOXICAM
  5. VITAMIN D [Concomitant]
     Active Substance: VITAMIN D NOS
  6. olly probiotics [Concomitant]

REACTIONS (4)
  - Gingival pain [None]
  - Gingival bleeding [None]
  - Gingival disorder [None]
  - Gingivitis [None]

NARRATIVE: CASE EVENT DATE: 20230515
